FAERS Safety Report 14543806 (Version 1)
Quarter: 2018Q1

REPORT INFORMATION
  Report Type: Spontaneous
  Country: US (occurrence: US)
  Receive Date: 20180216
  Receipt Date: 20180216
  Transmission Date: 20180509
  Serious: No
  Sender: FDA-Public Use
  Company Number: US-IPSEN BIOPHARMACEUTICALS, INC.-2017-03087

PATIENT
  Sex: Female

DRUGS (7)
  1. DYSPORT [Suspect]
     Active Substance: ABOBOTULINUMTOXINA
     Indication: OFF LABEL USE
  2. DYSPORT [Suspect]
     Active Substance: ABOBOTULINUMTOXINA
     Indication: SKIN WRINKLING
  3. DYSPORT [Suspect]
     Active Substance: ABOBOTULINUMTOXINA
     Indication: SKIN WRINKLING
     Dosage: 135 UNITS
     Route: 065
     Dates: start: 20170405, end: 20170405
  4. DYSPORT [Suspect]
     Active Substance: ABOBOTULINUMTOXINA
     Indication: SKIN WRINKLING
  5. ATIVAN [Concomitant]
     Active Substance: LORAZEPAM
  6. PHENERGAN [Concomitant]
     Active Substance: PROMETHAZINE HYDROCHLORIDE
  7. DYSPORT [Suspect]
     Active Substance: ABOBOTULINUMTOXINA
     Indication: SKIN WRINKLING
     Dosage: 135 UNITS
     Route: 030
     Dates: start: 20170322, end: 20170322

REACTIONS (6)
  - Incorrect route of drug administration [Unknown]
  - Drug ineffective [Unknown]
  - Off label use [Unknown]
  - Product preparation error [Unknown]
  - Overdose [Unknown]
  - Inappropriate schedule of drug administration [Unknown]
